FAERS Safety Report 8918774 (Version 2)
Quarter: 2014Q2

REPORT INFORMATION
  Report Type: Spontaneous
  Country: US (occurrence: US)
  Receive Date: 20121120
  Receipt Date: 20140613
  Transmission Date: 20141212
  Serious: No
  Sender: FDA-Public Use
  Company Number: US-ASTRAZENECA-2012SE20910

PATIENT
  Age: 25 Year
  Sex: Female
  Weight: 50.8 kg

DRUGS (2)
  1. NEXIUM [Suspect]
     Indication: DYSPEPSIA
     Route: 048
  2. NEXIUM [Suspect]
     Indication: DYSPEPSIA
     Route: 048
     Dates: start: 2005, end: 2011

REACTIONS (7)
  - Gastrooesophageal reflux disease [Unknown]
  - Tremor [Recovered/Resolved]
  - Palpitations [Recovered/Resolved]
  - Dyspepsia [Recovered/Resolved]
  - Irritable bowel syndrome [Recovered/Resolved]
  - Regurgitation [Recovered/Resolved]
  - Intentional product misuse [Unknown]
